FAERS Safety Report 16269826 (Version 2)
Quarter: 2019Q2

REPORT INFORMATION
  Report Type: Spontaneous
  Country: US (occurrence: US)
  Receive Date: 20190503
  Receipt Date: 20190516
  Transmission Date: 20190711
  Serious: Yes (Death, Other)
  Sender: FDA-Public Use
  Company Number: US-ROCHE-2311982

PATIENT
  Sex: Male
  Weight: 167.98 kg

DRUGS (6)
  1. LATANOPROST. [Concomitant]
     Active Substance: LATANOPROST
     Dosage: ONGOING:UNKNOWN
     Route: 047
     Dates: start: 20190307
  2. TRAMADOL HCL [Concomitant]
     Active Substance: TRAMADOL HYDROCHLORIDE
     Dosage: ONGOING:UNKNOWN
     Route: 048
     Dates: start: 20190307
  3. FUROSEMIDE. [Concomitant]
     Active Substance: FUROSEMIDE
     Dosage: ONGOING:UNKNOWN
     Route: 048
     Dates: start: 20190307
  4. XALKORI [Concomitant]
     Active Substance: CRIZOTINIB
     Dosage: ONGOING:UNKNOWN
     Route: 048
     Dates: start: 20190307
  5. ALECENSA [Suspect]
     Active Substance: ALECTINIB HYDROCHLORIDE
     Indication: NEOPLASM MALIGNANT
     Dosage: 8 DAILY, ONGOING
     Route: 048
     Dates: start: 20190319
  6. AMIODARONE [Concomitant]
     Active Substance: AMIODARONE
     Dosage: ONGOING:UNKNOWN
     Route: 048
     Dates: start: 20190415

REACTIONS (5)
  - Diarrhoea [Unknown]
  - Atrial fibrillation [Unknown]
  - Constipation [Unknown]
  - Paraesthesia [Unknown]
  - Death [Fatal]
